FAERS Safety Report 26203814 (Version 1)
Quarter: 2025Q4

REPORT INFORMATION
  Report Type: Spontaneous
  Country: US (occurrence: US)
  Receive Date: 20251226
  Receipt Date: 20251226
  Transmission Date: 20260118
  Serious: Yes (Other)
  Sender: MERCK SHARP & DOHME LLC
  Company Number: US-009507513-2364117

PATIENT
  Age: 37 Year
  Sex: Female

DRUGS (3)
  1. DAPTOMYCIN [Suspect]
     Active Substance: DAPTOMYCIN
     Indication: Diabetic foot infection
  2. MEROPENEM [Concomitant]
     Active Substance: MEROPENEM
     Indication: Diabetic foot infection
  3. CLINDAMYCIN [Concomitant]
     Active Substance: CLINDAMYCIN
     Indication: Diabetic foot infection

REACTIONS (1)
  - Eosinophilic pneumonia [Recovering/Resolving]
